FAERS Safety Report 26047828 (Version 1)
Quarter: 2025Q4

REPORT INFORMATION
  Report Type: Spontaneous
  Country: EU (occurrence: EU)
  Receive Date: 20251114
  Receipt Date: 20251114
  Transmission Date: 20260117
  Serious: Yes (Hospitalization)
  Sender: FRESENIUS KABI
  Company Number: EU-FreseniusKabi-FK202515192

PATIENT
  Age: 72 Year
  Sex: Female
  Weight: 83 kg

DRUGS (3)
  1. TYENNE [Suspect]
     Active Substance: TOCILIZUMAB-AAZG
     Indication: Rheumatoid arthritis
     Dosage: 1 BOTTLE OF 400MG?INFUSION STARTED FROM 03:35 P.M. TO 4:45 P.M.
     Route: 042
     Dates: start: 20251104, end: 20251104
  2. TYENNE [Suspect]
     Active Substance: TOCILIZUMAB-AAZG
     Dosage: 1 BOTTLE OF 200MG
     Route: 042
     Dates: start: 20251104, end: 20251104
  3. TYENNE [Suspect]
     Active Substance: TOCILIZUMAB-AAZG
     Dosage: 60MG TAKEN IN THE 1 BOTTLE OF 80MG
     Route: 042
     Dates: start: 20251104, end: 20251104

REACTIONS (5)
  - Hypertension [Recovering/Resolving]
  - Erythema [Recovering/Resolving]
  - Swelling face [Recovering/Resolving]
  - Tremor [Recovering/Resolving]
  - Chills [Recovering/Resolving]

NARRATIVE: CASE EVENT DATE: 20251104
